FAERS Safety Report 6505848-5 (Version None)
Quarter: 2009Q4

REPORT INFORMATION
  Report Type: 
  Country: None (occurrence: None)
  Receive Date: 20091218
  Receipt Date: 20091208
  Transmission Date: 20100525
  Serious: Yes (Other)
  Sender: FDA-Public Use
  Company Number: CH-ELI_LILLY_AND_COMPANY-CH200912002024

PATIENT
  Age: 58 Year
  Sex: Male

DRUGS (7)
  1. CYMBALTA [Suspect]
     Dosage: 30 MG, DAILY (1/D)
     Route: 048
     Dates: start: 20091012, end: 20091001
  2. ERYTHROMYCIN [Concomitant]
     Dosage: 500 MG, 4/D
     Route: 048
     Dates: start: 20090915, end: 20090901
  3. FLUCONAZOLE [Concomitant]
     Dosage: 50 MG, DAILY (1/D)
     Route: 048
     Dates: start: 20090701, end: 20090701
  4. SINTROM [Concomitant]
     Dosage: UNK UNK, AS NEEDED
     Route: 048
     Dates: start: 20090301
  5. TRANXILIUM [Concomitant]
     Dosage: 5 MG, DAILY (1/D)
     Route: 048
     Dates: start: 20091012
  6. SULFARLEM [Concomitant]
     Dosage: 1 D/F, DAILY (1/D)
     Route: 048
  7. NEXIUM [Concomitant]
     Dosage: 40 MG, DAILY (1/D)
     Route: 048
     Dates: start: 20080101

REACTIONS (2)
  - RENAL FAILURE ACUTE [None]
  - TUBULOINTERSTITIAL NEPHRITIS [None]
